FAERS Safety Report 4758999-X (Version None)
Quarter: 2005Q3

REPORT INFORMATION
  Report Type: 
  Country: None (occurrence: None)
  Receive Date: 20050901
  Receipt Date: 20050603
  Transmission Date: 20060218
  Serious: Yes (Other)
  Sender: FDA-Public Use
  Company Number: PHHO2005CA08960

PATIENT
  Age: 46 Year
  Sex: Female

DRUGS (3)
  1. ZELNORM [Suspect]
     Indication: IRRITABLE BOWEL SYNDROME
     Dosage: UNK, UNK
  2. ZELNORM [Suspect]
     Dates: start: 20050818
  3. CLONIDINE [Concomitant]

REACTIONS (4)
  - CHOLECYSTECTOMY [None]
  - CHOLELITHIASIS [None]
  - POSTOPERATIVE WOUND COMPLICATION [None]
  - WEIGHT DECREASED [None]
